FAERS Safety Report 10689346 (Version 3)
Quarter: 2015Q2

REPORT INFORMATION
  Report Type: Spontaneous
  Country: CA (occurrence: None)
  Receive Date: 20141231
  Receipt Date: 20150506
  Transmission Date: 20150821
  Serious: Yes (Other)
  Sender: FDA-Public Use
  Company Number: 2014CA011046

PATIENT
  Age: 71 Year
  Sex: Male

DRUGS (6)
  1. ATENOLOL. [Concomitant]
     Active Substance: ATENOLOL
  2. FLOMAX [Concomitant]
     Active Substance: TAMSULOSIN HYDROCHLORIDE
  3. ELIGARD [Suspect]
     Active Substance: LEUPROLIDE ACETATE
  4. ASAPHEN (ACETYLSALICYLIC ACID) [Concomitant]
  5. PLAVIX (CLOPIDOGREL BISULFATE) [Concomitant]
  6. ATORVASTATIN [Concomitant]
     Active Substance: ATORVASTATIN

REACTIONS (7)
  - Loss of consciousness [None]
  - Dizziness [None]
  - Sensory loss [None]
  - Pain [None]
  - Hypoaesthesia [None]
  - Gait disturbance [None]
  - Angiopathy [None]
